FAERS Safety Report 9190764 (Version 1)
Quarter: 2013Q1

REPORT INFORMATION
  Report Type: Spontaneous
  Country: US (occurrence: US)
  Receive Date: 20130326
  Receipt Date: 20130326
  Transmission Date: 20140127
  Serious: Yes (Other)
  Sender: FDA-Public Use
  Company Number: US-JNJFOC-20130311173

PATIENT
  Age: 79 None
  Sex: Female
  Weight: 79.38 kg

DRUGS (9)
  1. XARELTO [Suspect]
     Indication: CEREBROVASCULAR ACCIDENT PROPHYLAXIS
     Route: 048
     Dates: start: 20120809
  2. XARELTO [Suspect]
     Indication: ATRIAL FIBRILLATION
     Route: 048
     Dates: start: 20120809
  3. TIKOSYN [Concomitant]
     Indication: ATRIAL FIBRILLATION
     Route: 048
     Dates: start: 20121226
  4. ATIVAN [Concomitant]
     Indication: ANXIETY
     Dosage: EVERY FOUR HOURS AS NEEDED
     Route: 048
     Dates: start: 20130214
  5. TOPROL XL [Concomitant]
     Indication: EXTRASYSTOLES
     Dosage: ONCE DAILY, PLUS ONE AS NEEDED
     Route: 048
     Dates: start: 1998
  6. PRILOSEC [Concomitant]
     Indication: GASTRIC DISORDER
     Route: 048
  7. PREVACID [Concomitant]
     Indication: HYPERCHLORHYDRIA
     Route: 048
     Dates: start: 201302
  8. VITAMIN D3 [Concomitant]
     Indication: VITAMIN D DECREASED
     Route: 048
     Dates: start: 201204
  9. VITAMIN B12 [Concomitant]
     Route: 050

REACTIONS (8)
  - Atrial fibrillation [Recovered/Resolved]
  - Joint swelling [Not Recovered/Not Resolved]
  - Decreased appetite [Not Recovered/Not Resolved]
  - Arthralgia [Not Recovered/Not Resolved]
  - Vitamin D deficiency [Not Recovered/Not Resolved]
  - Weight decreased [Not Recovered/Not Resolved]
  - Asthenia [Not Recovered/Not Resolved]
  - Eating disorder [Not Recovered/Not Resolved]
